FAERS Safety Report 10469182 (Version 1)
Quarter: 2014Q3

REPORT INFORMATION
  Report Type: Spontaneous
  Country: US (occurrence: None)
  Receive Date: 20140922
  Receipt Date: 20140922
  Transmission Date: 20150326
  Serious: Yes (Life-Threatening, Hospitalization, Disabling)
  Sender: FDA-Public Use
  Company Number: None

PATIENT

DRUGS (4)
  1. CRESTOR [Suspect]
     Active Substance: ROSUVASTATIN CALCIUM
  2. BENICAR [Suspect]
     Active Substance: OLMESARTAN MEDOXOMIL
  3. LUPRON DEPOT [Suspect]
     Active Substance: LEUPROLIDE ACETATE
  4. ATORVASTATIN [Suspect]
     Active Substance: ATORVASTATIN

REACTIONS (40)
  - Ischaemia [None]
  - Osteoporosis [None]
  - Mobility decreased [None]
  - Fatigue [None]
  - Joint range of motion decreased [None]
  - Abdominal distension [None]
  - Peripheral coldness [None]
  - Dyspnoea [None]
  - Mental impairment [None]
  - Feeling abnormal [None]
  - Cerebrovascular accident [None]
  - Muscle tightness [None]
  - Arthralgia [None]
  - Joint swelling [None]
  - Generalised oedema [None]
  - Foot deformity [None]
  - Malaise [None]
  - Activities of daily living impaired [None]
  - Amnesia [None]
  - Memory impairment [None]
  - Chest discomfort [None]
  - Myalgia [None]
  - Arthropathy [None]
  - Blood pressure increased [None]
  - Joint crepitation [None]
  - Hiatus hernia [None]
  - Dyspepsia [None]
  - Frustration [None]
  - Hypothyroidism [None]
  - Hypoaesthesia [None]
  - Hot flush [None]
  - Chest pain [None]
  - Bone pain [None]
  - Pain [None]
  - Gait disturbance [None]
  - Musculoskeletal disorder [None]
  - Musculoskeletal stiffness [None]
  - Thinking abnormal [None]
  - Muscle disorder [None]
  - Somnolence [None]

NARRATIVE: CASE EVENT DATE: 2012
